FAERS Safety Report 21208017 (Version 1)
Quarter: 2022Q3

REPORT INFORMATION
  Report Type: Spontaneous
  Country: CN (occurrence: CN)
  Receive Date: 20220812
  Receipt Date: 20220812
  Transmission Date: 20221027
  Serious: Yes (Hospitalization)
  Sender: FDA-Public Use
  Company Number: CN-SPECGX-T202201755

PATIENT
  Sex: Male
  Weight: 83 kg

DRUGS (3)
  1. ACETAMINOPHEN\OXYCODONE HYDROCHLORIDE [Suspect]
     Active Substance: ACETAMINOPHEN\OXYCODONE HYDROCHLORIDE
     Indication: Analgesic therapy
     Dosage: 2 DOSAGE FORM, TID
     Route: 048
     Dates: start: 20220626, end: 20220703
  2. ACETAMINOPHEN\OXYCODONE HYDROCHLORIDE [Suspect]
     Active Substance: ACETAMINOPHEN\OXYCODONE HYDROCHLORIDE
     Indication: Prophylaxis
  3. ROXITHROMYCIN [Suspect]
     Active Substance: ROXITHROMYCIN
     Indication: Urinary tract discomfort
     Dosage: 300 MILLIGRAM, QD
     Route: 048
     Dates: start: 20220626, end: 20220703

REACTIONS (3)
  - Hepatic steatosis [Recovering/Resolving]
  - Transaminases increased [Recovering/Resolving]
  - Prescription drug used without a prescription [Unknown]
